FAERS Safety Report 16393426 (Version 1)
Quarter: 2019Q2

REPORT INFORMATION
  Report Type: Spontaneous
  Country: CN (occurrence: CN)
  Receive Date: 20190605
  Receipt Date: 20190605
  Transmission Date: 20190711
  Serious: Yes (Hospitalization, Other)
  Sender: FDA-Public Use
  Company Number: CN-PFIZER INC-2019236689

PATIENT
  Age: 64 Year
  Sex: Female

DRUGS (1)
  1. CEFOPERAZONE SODIUM [Suspect]
     Active Substance: CEFOPERAZONE SODIUM
     Indication: TRACHEOBRONCHITIS
     Dosage: 2 G, 2X/DAY
     Route: 041
     Dates: start: 20190505, end: 20190519

REACTIONS (2)
  - Loss of consciousness [Recovered/Resolved]
  - Muscle twitching [Recovering/Resolving]

NARRATIVE: CASE EVENT DATE: 20190520
